FAERS Safety Report 7381816-9 (Version None)
Quarter: 2011Q1

REPORT INFORMATION
  Report Type: 
  Country: None (occurrence: None)
  Receive Date: 20110329
  Receipt Date: 20110317
  Transmission Date: 20110831
  Serious: Yes (Other)
  Sender: FDA-Public Use
  Company Number: PHHY2011GB22139

PATIENT
  Sex: Male

DRUGS (1)
  1. PENICILLIN V [Suspect]
     Dosage: 250MG/5 ML
     Route: 048

REACTIONS (2)
  - VOMITING [None]
  - DYSGEUSIA [None]
